FAERS Safety Report 12451562 (Version 1)
Quarter: 2016Q2

REPORT INFORMATION
  Report Type: Spontaneous
  Country: IT (occurrence: IT)
  Receive Date: 20160609
  Receipt Date: 20160609
  Transmission Date: 20160815
  Serious: Yes (Other)
  Sender: FDA-Public Use
  Company Number: IT-ACTAVIS-2016-11540

PATIENT
  Age: 78 Year
  Sex: Male
  Weight: 75 kg

DRUGS (1)
  1. CLOPIDOGREL [Suspect]
     Active Substance: CLOPIDOGREL BISULFATE
     Indication: ISCHAEMIC STROKE
     Dosage: 75 MG, DAILY
     Route: 048
     Dates: start: 20150601

REACTIONS (3)
  - Haematoma [Unknown]
  - Petechiae [Unknown]
  - Bleeding time prolonged [Unknown]

NARRATIVE: CASE EVENT DATE: 20160319
